FAERS Safety Report 5632228-7 (Version None)
Quarter: 2008Q1

REPORT INFORMATION
  Report Type: 
  Country: None (occurrence: None)
  Receive Date: 20080220
  Receipt Date: 20080211
  Transmission Date: 20080703
  Serious: Yes (Death)
  Sender: FDA-Public Use
  Company Number: IN-BAXTER-2007BH010046

PATIENT
  Age: 64 Year
  Sex: Male
  Weight: 54 kg

DRUGS (7)
  1. DIANEAL [Suspect]
     Indication: PERITONEAL DIALYSIS
     Route: 033
     Dates: start: 20071101, end: 20070101
  2. DIANEAL [Suspect]
     Route: 033
     Dates: start: 20071101, end: 20070101
  3. NORADRENALINE [Concomitant]
     Indication: DRUG USE FOR UNKNOWN INDICATION
     Dosage: DOSE UNIT:UNKNOWN
     Route: 065
     Dates: start: 20071218
  4. ROCALTROL [Concomitant]
     Indication: DRUG USE FOR UNKNOWN INDICATION
     Route: 065
     Dates: start: 20070101
  5. CIZAPRIDE [Concomitant]
     Indication: DRUG USE FOR UNKNOWN INDICATION
     Dosage: DOSE UNIT:UNKNOWN
     Route: 065
     Dates: start: 20070101
  6. HUMAN ACTRAPID [Concomitant]
     Indication: DRUG USE FOR UNKNOWN INDICATION
     Route: 065
     Dates: start: 19910101
  7. ARKAMINE [Concomitant]
     Indication: DRUG USE FOR UNKNOWN INDICATION
     Dosage: DOSE UNIT:UNKNOWN
     Route: 065
     Dates: start: 20050101

REACTIONS (1)
  - CARDIAC ARREST [None]
